FAERS Safety Report 15112165 (Version 2)
Quarter: 2019Q1

REPORT INFORMATION
  Report Type: Spontaneous
  Country: US (occurrence: US)
  Receive Date: 20180705
  Receipt Date: 20190211
  Transmission Date: 20190417
  Serious: Yes (Hospitalization, Other)
  Sender: FDA-Public Use
  Company Number: US-TEVA-2018-US-918914

PATIENT
  Age: 70 Year
  Sex: Female

DRUGS (2)
  1. AMIODARONE [Suspect]
     Active Substance: AMIODARONE
     Indication: ATRIAL FIBRILLATION
     Route: 065
  2. FLECAINIDE [Suspect]
     Active Substance: FLECAINIDE
     Indication: ATRIAL FIBRILLATION
     Dosage: 100MG EVERY 12 HOURS
     Route: 065

REACTIONS (5)
  - Acute lung injury [Recovered/Resolved]
  - Leukocytosis [Unknown]
  - Pneumonitis [Recovered/Resolved]
  - Respiratory failure [Recovering/Resolving]
  - Drug-induced liver injury [Unknown]
